FAERS Safety Report 9094068 (Version 1)
Quarter: 2013Q1

REPORT INFORMATION
  Report Type: Spontaneous
  Country: US (occurrence: US)
  Receive Date: 20130201
  Receipt Date: 20130201
  Transmission Date: 20140127
  Serious: No
  Sender: FDA-Public Use
  Company Number: US-GALDERMA-US-GDP-12415236

PATIENT
  Age: 13 Year
  Sex: Female
  Weight: 50 kg

DRUGS (1)
  1. EPIDUO (ADAPALENE) [Suspect]
     Indication: ACNE
     Route: 061
     Dates: start: 20120923, end: 20120927

REACTIONS (2)
  - Swelling face [Not Recovered/Not Resolved]
  - Erythema [Not Recovered/Not Resolved]
